FAERS Safety Report 23263674 (Version 1)
Quarter: 2023Q4

REPORT INFORMATION
  Report Type: Spontaneous
  Country: US (occurrence: None)
  Receive Date: 20231205
  Receipt Date: 20231205
  Transmission Date: 20240109
  Serious: Yes (Hospitalization)
  Sender: FDA-Public Use
  Company Number: None

PATIENT
  Age: 67 Year
  Sex: Male

DRUGS (2)
  1. PEG-3350 AND ELECTROLYTES [Suspect]
     Active Substance: POLYETHYLENE GLYCOL 3350\POTASSIUM CHLORIDE\SODIUM BICARBONATE\SODIUM CHLORIDE\SODIUM SULFATE
     Dates: start: 20231102
  2. BISACODYL [Suspect]
     Active Substance: BISACODYL
     Dates: start: 20231102, end: 20231102

REACTIONS (6)
  - Diarrhoea [None]
  - Dehydration [None]
  - Abdominal pain [None]
  - Pain [None]
  - White blood cell count increased [None]
  - Diverticular perforation [None]

NARRATIVE: CASE EVENT DATE: 20231123
